FAERS Safety Report 4550608-8 (Version None)
Quarter: 2004Q4

REPORT INFORMATION
  Report Type: 
  Country: None (occurrence: None)
  Receive Date: 20041227
  Receipt Date: 20040923
  Transmission Date: 20050328
  Serious: No
  Sender: FDA-Public Use
  Company Number: 04P-163-0274443-00

PATIENT
  Age: 83 Year
  Sex: Female
  Weight: 67.1324 kg

DRUGS (12)
  1. HUMIRA [Suspect]
     Indication: RHEUMATOID ARTHRITIS
     Dosage: 40 MG, 1 IN 2 SUBCUTANEOUS,
     Route: 058
     Dates: start: 20040526
  2. PREDNISONE [Concomitant]
  3. HYDROXYCHLORIDE [Concomitant]
  4. CYPROHEPTADINE HYDROCHLORIDE [Concomitant]
  5. BETAINE [Concomitant]
  6. HYDROCHLORIDE [Concomitant]
  7. CYANOCOBALAMIN [Concomitant]
  8. INTENZYME [Concomitant]
  9. OPTIC PLUS FORTE [Concomitant]
  10. ARABINOGALACTAN [Concomitant]
  11. BIOGLYCOZYME FORTE [Concomitant]
  12. LIVAPLEX [Concomitant]

REACTIONS (2)
  - DYSPNOEA [None]
  - PAIN IN EXTREMITY [None]
